FAERS Safety Report 6800674-1 (Version None)
Quarter: 2010Q2

REPORT INFORMATION
  Report Type: 
  Country: None (occurrence: None)
  Receive Date: 20100629
  Receipt Date: 20100614
  Transmission Date: 20101027
  Serious: Yes (Other)
  Sender: FDA-Public Use
  Company Number: PHHO2007BR01477

PATIENT
  Age: 33 Year
  Sex: Female

DRUGS (2)
  1. ELIDEL [Suspect]
     Indication: HYPERSENSITIVITY
     Dates: start: 20060119
  2. ELIDEL [Suspect]
     Dosage: TWO TIMES DAILY
     Dates: start: 20070101

REACTIONS (2)
  - CAESAREAN SECTION [None]
  - DRUG EXPOSURE DURING PREGNANCY [None]
